FAERS Safety Report 9123063 (Version 1)
Quarter: 2013Q1

REPORT INFORMATION
  Report Type: Spontaneous
  Country: US (occurrence: None)
  Receive Date: 20130225
  Receipt Date: 20130225
  Transmission Date: 20140127
  Serious: Yes (Death, Life-Threatening, Hospitalization)
  Sender: FDA-Public Use
  Company Number: None

PATIENT
  Age: 76 Year
  Sex: Male
  Weight: 80 kg

DRUGS (8)
  1. PRASUGREL [Suspect]
     Indication: ANTIPLATELET THERAPY
     Dosage: 10 MG   DAILY   PO?01/05/2013  --  02/05/2013
     Route: 048
     Dates: start: 20130105, end: 20130205
  2. PRASUGREL [Suspect]
     Indication: CORONARY ARTERY DISEASE
     Dosage: 10 MG   DAILY   PO?01/05/2013  --  02/05/2013
     Route: 048
     Dates: start: 20130105, end: 20130205
  3. PRASUGREL [Suspect]
     Indication: CORONARY ARTERIAL STENT INSERTION
     Dosage: 10 MG   DAILY   PO?01/05/2013  --  02/05/2013
     Route: 048
     Dates: start: 20130105, end: 20130205
  4. PRASUGREL [Suspect]
     Indication: POSTOPERATIVE CARE
     Dosage: 10 MG   DAILY   PO?01/05/2013  --  02/05/2013
     Route: 048
     Dates: start: 20130105, end: 20130205
  5. ASPIRIN [Suspect]
     Indication: CORONARY ARTERY DISEASE
     Dosage: 81 MG   DAILY   PO?12/27/2012  --  02/05/2013
     Route: 048
     Dates: start: 20121227, end: 20130205
  6. ASPIRIN [Suspect]
     Indication: ANTIPLATELET THERAPY
     Dosage: 81 MG   DAILY   PO?12/27/2012  --  02/05/2013
     Route: 048
     Dates: start: 20121227, end: 20130205
  7. ASPIRIN [Suspect]
     Indication: CORONARY ARTERIAL STENT INSERTION
     Dosage: 81 MG   DAILY   PO?12/27/2012  --  02/05/2013
     Route: 048
     Dates: start: 20121227, end: 20130205
  8. ASPIRIN [Suspect]
     Indication: POSTOPERATIVE CARE
     Dosage: 81 MG   DAILY   PO?12/27/2012  --  02/05/2013
     Route: 048
     Dates: start: 20121227, end: 20130205

REACTIONS (3)
  - Unresponsive to stimuli [None]
  - Haemorrhage intracranial [None]
  - Subdural haemorrhage [None]
